FAERS Safety Report 9505723 (Version 1)
Quarter: 2013Q1

REPORT INFORMATION
  Report Type: Spontaneous
  Country: US (occurrence: None)
  Receive Date: 20130220
  Receipt Date: 20130220
  Transmission Date: 20140127
  Serious: No
  Sender: FDA-Public Use
  Company Number: 1000040161

PATIENT
  Age: 75 Year
  Sex: Female

DRUGS (13)
  1. VIIBRYD [Suspect]
     Indication: DEPRESSION
     Route: 048
     Dates: start: 20121024, end: 201211
  2. VIIBRYD [Suspect]
     Indication: OBSESSIVE-COMPULSIVE DISORDER
     Route: 048
     Dates: start: 20121024, end: 201211
  3. VIIBYRD [Suspect]
     Indication: DEPRESSION
     Route: 048
     Dates: start: 20121119, end: 20121202
  4. VIIBYRD [Suspect]
     Indication: OBSESSIVE-COMPULSIVE DISORDER
     Route: 048
     Dates: start: 20121119, end: 20121202
  5. ALPRAZOLAM (ALPRAZOLAM) (ALPRAZOLAM) [Concomitant]
  6. OMEPRAZOLE (OMEPRAZOLE) (OMEPRAZOLE) [Concomitant]
  7. LISINOPRIL (LISINOPRIL) (LISINOPRIL) [Concomitant]
  8. ZETIA (EZETIMIBE) (EZETIMIBE) [Concomitant]
  9. WELCHOL (COLESEVELAM HYDROCHLORIDE) (COLESEVELAM HYDROCHLORIDE) [Concomitant]
  10. ASPIRIN (ACETYLSALICYLIC ACID) (ACETYLSALICYLIC ACID) [Concomitant]
  11. FEXOFENADINE (FEXOFENADINE) (FEXOFENADINE) [Concomitant]
  12. PROBIOTICS (PROBIOTICS) (PROBIOTICS) [Concomitant]
  13. MAXAIR (PIRBUTEROL ACETATE) (PIRBUTEROL ACETATE) [Concomitant]

REACTIONS (2)
  - Oropharyngeal pain [None]
  - Abdominal pain upper [None]
